FAERS Safety Report 13225406 (Version 1)
Quarter: 2017Q1

REPORT INFORMATION
  Report Type: Spontaneous
  Country: GB (occurrence: GB)
  Receive Date: 20170213
  Receipt Date: 20170213
  Transmission Date: 20170428
  Serious: Yes (Other)
  Sender: FDA-Public Use
  Company Number: PHFR2017GB001082

PATIENT

DRUGS (2)
  1. SIGNIFOR [Suspect]
     Active Substance: PASIREOTIDE
     Indication: CUSHING^S SYNDROME
     Route: 058
  2. SIGNIFOR [Suspect]
     Active Substance: PASIREOTIDE
     Dosage: 150 MG, QOD (ON ALTERNATE DAYS)
     Route: 058

REACTIONS (1)
  - Adrenal insufficiency [Unknown]
